FAERS Safety Report 6608386-4 (Version None)
Quarter: 2010Q1

REPORT INFORMATION
  Report Type: 
  Country: None (occurrence: None)
  Receive Date: 20100301
  Receipt Date: 20100218
  Transmission Date: 20100710
  Serious: Yes (Hospitalization)
  Sender: FDA-Public Use
  Company Number: US-ASTRAZENECA-2010SE01671

PATIENT
  Age: 82 Year
  Sex: Male

DRUGS (10)
  1. MEROPENEM [Suspect]
     Indication: PNEUMONIA
     Route: 042
     Dates: start: 20091130, end: 20091206
  2. OMEPRAL [Concomitant]
     Indication: PEPTIC ULCER HAEMORRHAGE
     Dates: start: 20091130, end: 20091201
  3. TAKEPRON [Concomitant]
     Indication: GASTROINTESTINAL DISORDER
     Route: 048
     Dates: end: 20091206
  4. NU-LOTAN [Concomitant]
     Indication: HYPERTENSION
     Route: 048
  5. DEPAS [Concomitant]
     Indication: INSOMNIA
     Route: 048
  6. CLARITH [Concomitant]
     Indication: ASTHMA
     Route: 048
  7. ONON [Concomitant]
     Indication: ASTHMA
     Route: 048
  8. SPIRIVA [Concomitant]
     Indication: ASTHMA
     Route: 055
  9. ADOAIR [Concomitant]
     Indication: ASTHMA
     Route: 055
  10. SULPERAZON [Concomitant]
     Indication: PNEUMONIA
     Route: 042
     Dates: start: 20091127, end: 20091130

REACTIONS (1)
  - INTERSTITIAL LUNG DISEASE [None]
